FAERS Safety Report 23314140 (Version 1)
Quarter: 2023Q4

REPORT INFORMATION
  Report Type: Spontaneous
  Country: US (occurrence: US)
  Receive Date: 20231219
  Receipt Date: 20231219
  Transmission Date: 20240110
  Serious: Yes (Life-Threatening, Other)
  Sender: FDA-Public Use
  Company Number: US-FreseniusKabi-FK202320339

PATIENT
  Sex: Female

DRUGS (2)
  1. MAGNESIUM SULFATE HEPTAHYDRATE [Suspect]
     Active Substance: MAGNESIUM SULFATE HEPTAHYDRATE
     Indication: Product used for unknown indication
     Route: 040
  2. MAGNESIUM SULFATE HEPTAHYDRATE [Suspect]
     Active Substance: MAGNESIUM SULFATE HEPTAHYDRATE
     Dosage: MAGNESIUM SULFATE 1000 ML?2 GM/ HOUR (AS A CONTINUOUS INFUSION)
     Route: 042

REACTIONS (1)
  - Unresponsive to stimuli [Unknown]
